FAERS Safety Report 7233331-0 (Version None)
Quarter: 2011Q1

REPORT INFORMATION
  Report Type: 
  Country: None (occurrence: None)
  Receive Date: 20110119
  Receipt Date: 20110110
  Transmission Date: 20110831
  Serious: Yes (Other)
  Sender: FDA-Public Use
  Company Number: CA-ROCHE-752181

PATIENT

DRUGS (4)
  1. MYCOPHENOLATE MOFETIL [Suspect]
     Indication: IMMUNOSUPPRESSION
     Route: 048
  2. TACROLIMUS [Suspect]
     Indication: IMMUNOSUPPRESSION
     Dosage: LOW DOSE.
     Route: 065
  3. PREDNISONE [Suspect]
     Indication: IMMUNOSUPPRESSION
     Route: 065
  4. TRIMETHOPRIM + SULFAMETHOXAZOLE [Concomitant]

REACTIONS (8)
  - HYPONATRAEMIA [None]
  - ASTHMA [None]
  - TRANSPLANT REJECTION [None]
  - PNEUMONIA [None]
  - GASTROENTERITIS [None]
  - DEHYDRATION [None]
  - POST PROCEDURAL HAEMORRHAGE [None]
  - GRAFT DYSFUNCTION [None]
